FAERS Safety Report 25406706 (Version 2)
Quarter: 2025Q2

REPORT INFORMATION
  Report Type: Spontaneous
  Country: US (occurrence: US)
  Receive Date: 20250606
  Receipt Date: 20250616
  Transmission Date: 20250716
  Serious: No
  Sender: TAIHO ONCOLOGY INC
  Company Number: US-TAIHOP-2025-005863

PATIENT
  Sex: Female
  Weight: 86.18 kg

DRUGS (1)
  1. LONSURF [Suspect]
     Active Substance: TIPIRACIL HYDROCHLORIDE\TRIFLURIDINE
     Indication: Colon cancer
     Dosage: CYCLE UNKNOWN?FORM STRENGTH: 15MG AND 20MG
     Route: 048

REACTIONS (3)
  - Constipation [Unknown]
  - Diarrhoea [Unknown]
  - Haemorrhoids [Unknown]
